FAERS Safety Report 5406436-4 (Version None)
Quarter: 2007Q3

REPORT INFORMATION
  Report Type: 
  Country: None (occurrence: None)
  Receive Date: 20070713
  Receipt Date: 20070416
  Transmission Date: 20080115
  Serious: Yes (Hospitalization)
  Sender: FDA-Public Use
  Company Number: US-JNJFOC-20070403976

PATIENT
  Age: 32 Year
  Sex: Female
  Weight: 46.7205 kg

DRUGS (2)
  1. ORTHO EVRA [Suspect]
     Indication: CONTRACEPTION
     Dosage: TRANSDERMAL; 1 DOSE(S), 2 IN 1 WEEK, TRANSDERMAL
     Route: 062
     Dates: start: 20030301, end: 20031001
  2. ORTHO EVRA [Suspect]
     Indication: CONTRACEPTION
     Dosage: TRANSDERMAL; 1 DOSE(S), 2 IN 1 WEEK, TRANSDERMAL
     Route: 062
     Dates: end: 20051031

REACTIONS (2)
  - PALPITATIONS [None]
  - PULMONARY EMBOLISM [None]
